FAERS Safety Report 8533023-1 (Version None)
Quarter: 2012Q2

REPORT INFORMATION
  Report Type: 
  Country: None (occurrence: None)
  Receive Date: 20120412
  Receipt Date: 20100809
  Transmission Date: 20120825
  Serious: Yes (Other)
  Sender: FDA-Public Use
  Company Number: PHHY2010US49788

PATIENT
  Age: 56 Year
  Sex: Female

DRUGS (2)
  1. ESTALIS COMBIPATCH (ESTRADIOL, NORETHISTERONE ACETATE) UNKNOWN, 0.05/0 [Suspect]
     Dosage: TRANSDERMAL
     Route: 062
  2. ESTRADIOL [Suspect]

REACTIONS (2)
  - METRORRHAGIA [None]
  - HAEMORRHAGE [None]
